FAERS Safety Report 5273084-9 (Version None)
Quarter: 2007Q1

REPORT INFORMATION
  Report Type: 
  Country: None (occurrence: None)
  Receive Date: 20070322
  Receipt Date: 20070314
  Transmission Date: 20070707
  Serious: Yes (Death, Hospitalization, Other)
  Sender: FDA-Public Use
  Company Number: US-ABBOTT-07P-163-0361903-00

PATIENT
  Age: 56 Year
  Sex: Female

DRUGS (15)
  1. CYCLOSPORINE [Suspect]
     Indication: PROPHYLAXIS AGAINST GRAFT VERSUS HOST DISEASE
     Dosage: 5 MG/KG/DAY
  2. CYCLOSPORINE [Suspect]
     Dosage: NOT REPORTED
  3. CYCLOSPORINE [Suspect]
     Dosage: NOT REPORTED
  4. FLUDARABINE [Interacting]
     Indication: DRUG USE FOR UNKNOWN INDICATION
     Dosage: 30 MG/M^2, TOTAL DOSE 267 MG
  5. CARMUSTINE [Concomitant]
     Indication: DRUG USE FOR UNKNOWN INDICATION
     Dosage: 150 MG/M^2, TOTAL DOSE 534 MG
  6. MELPHALAN [Concomitant]
     Indication: DRUG USE FOR UNKNOWN INDICATION
     Dosage: 110 MG/M^2, TOTAL DOSE 196 MG
  7. MYCOPHENOLATE MOFETIL [Concomitant]
     Indication: PROPHYLAXIS AGAINST GRAFT VERSUS HOST DISEASE
  8. CEFTAZIDIME [Concomitant]
     Indication: PYREXIA
     Dosage: NOT REPORTED
  9. VANCOMYCIN [Concomitant]
     Indication: PYREXIA
     Dosage: NOT REPORTED
  10. IMIPENEM [Concomitant]
     Indication: PYREXIA
     Dosage: NOT REPORTED
  11. IMIPENEM [Concomitant]
     Dosage: NOT REPORTED
  12. FLUCONAZOLE [Concomitant]
     Indication: PYREXIA
     Dosage: NOT REPORTED
  13. AMPHOTERICIN B [Concomitant]
     Indication: PYREXIA
     Dosage: NOT REPORTED
  14. ACYCLOVIR [Concomitant]
     Indication: PYREXIA
     Dosage: NOT REPORTED
  15. FOSCARNET [Concomitant]
     Indication: PYREXIA
     Dosage: NOT REPORTED

REACTIONS (3)
  - DRUG INTERACTION [None]
  - LEUKOENCEPHALOPATHY [None]
  - NEUROTOXICITY [None]
